FAERS Safety Report 18352784 (Version 2)
Quarter: 2020Q4

REPORT INFORMATION
  Report Type: Spontaneous
  Country: US (occurrence: US)
  Receive Date: 20201006
  Receipt Date: 20201006
  Transmission Date: 20210114
  Serious: No
  Sender: FDA-Public Use
  Company Number: US-ALLERGAN-1937373US

PATIENT
  Age: 65 Year
  Sex: Female

DRUGS (9)
  1. LINZESS [Suspect]
     Active Substance: LINACLOTIDE
     Dosage: 72 ?G, BID
     Route: 048
  2. UNKNOWN CHOLESTEROL MEDICATION [Concomitant]
     Active Substance: UNSPECIFIED INGREDIENT
  3. LINZESS [Suspect]
     Active Substance: LINACLOTIDE
     Indication: CONSTIPATION
     Dosage: 2 DF
     Route: 048
     Dates: start: 20190906
  4. LINZESS [Suspect]
     Active Substance: LINACLOTIDE
     Dosage: 1 DF, QD
     Route: 048
     Dates: start: 20190904
  5. ZYRTEC [Concomitant]
     Active Substance: CETIRIZINE HYDROCHLORIDE
     Dosage: 10 MG, QD
  6. LINZESS [Suspect]
     Active Substance: LINACLOTIDE
     Indication: CONSTIPATION
     Dosage: 290 ?G
     Route: 048
  7. SINGULAIR [Concomitant]
     Active Substance: MONTELUKAST SODIUM
     Dosage: 10 MG, QD
  8. OMEPRAZOLE. [Concomitant]
     Active Substance: OMEPRAZOLE
     Dosage: 40 MG, QD
  9. SERTRALINE [Concomitant]
     Active Substance: SERTRALINE HYDROCHLORIDE
     Dosage: 100 MG, QD

REACTIONS (3)
  - Off label use [Unknown]
  - Constipation [Not Recovered/Not Resolved]
  - Drug ineffective [Unknown]

NARRATIVE: CASE EVENT DATE: 20190904
